FAERS Safety Report 13683132 (Version 3)
Quarter: 2017Q3

REPORT INFORMATION
  Report Type: Spontaneous
  Country: JP (occurrence: JP)
  Receive Date: 20170623
  Receipt Date: 20170714
  Transmission Date: 20171127
  Serious: Yes (Life-Threatening, Hospitalization, Other)
  Sender: FDA-Public Use
  Company Number: JP-PFIZER INC-2017270932

PATIENT
  Age: 49 Year
  Sex: Male

DRUGS (5)
  1. EFFEXOR [Suspect]
     Active Substance: VENLAFAXINE HYDROCHLORIDE
     Indication: ABULIA
  2. EFFEXOR [Suspect]
     Active Substance: VENLAFAXINE HYDROCHLORIDE
     Indication: DEPRESSED MOOD
     Dosage: 75 MG, 1X/DAY
     Route: 048
     Dates: start: 20160619
  3. NAUZELIN [Suspect]
     Active Substance: DOMPERIDONE
     Indication: DEPRESSED MOOD
     Dosage: 10 MG, 3X/DAY
     Route: 048
     Dates: start: 20160619, end: 20170616
  4. NAUZELIN [Suspect]
     Active Substance: DOMPERIDONE
     Indication: ABULIA
  5. RESTAS [Suspect]
     Active Substance: FLUTOPRAZEPAM
     Indication: ANXIETY
     Dosage: 2 MG, 1X/DAY
     Route: 048
     Dates: start: 20161113

REACTIONS (3)
  - Dyslipidaemia [Not Recovered/Not Resolved]
  - Cerebellar haemorrhage [Recovering/Resolving]
  - Diabetes mellitus [Not Recovered/Not Resolved]

NARRATIVE: CASE EVENT DATE: 20170603
